FAERS Safety Report 9226796 (Version 1)
Quarter: 2013Q2

REPORT INFORMATION
  Report Type: Spontaneous
  Country: US (occurrence: None)
  Receive Date: 20130410
  Receipt Date: 20130410
  Transmission Date: 20140414
  Serious: Yes (Hospitalization)
  Sender: FDA-Public Use
  Company Number: None

PATIENT
  Age: 78 Year
  Sex: Female
  Weight: 100 kg

DRUGS (17)
  1. RIVAROXABAN [Suspect]
     Indication: ATRIAL FIBRILLATION
     Dosage: 15 MG QHS ORAL
     Route: 048
  2. ASPIRIN [Suspect]
     Indication: OSTEOARTHRITIS
     Route: 048
  3. ALPRAZOLAM [Concomitant]
  4. ADVAIR [Concomitant]
  5. CARDIZEM [Concomitant]
  6. CHERATUSSIN AC [Concomitant]
  7. FLUOXETINE [Concomitant]
  8. HYDROCODONE/APAP [Concomitant]
  9. HYDROCHLOROTHIAZIDE [Concomitant]
  10. POLYETHYLENE GLYCOL [Concomitant]
  11. POTASSIUM CHLORIDE ER [Concomitant]
  12. SIMVASTATIN [Concomitant]
  13. SINGULAIR [Concomitant]
  14. SPIRIVA [Concomitant]
  15. SPIRONOLACTONE [Concomitant]
  16. VENTOLIN INHALER [Concomitant]
  17. BUPROPRION SR [Concomitant]

REACTIONS (5)
  - Asthenia [None]
  - Dyspnoea [None]
  - Fatigue [None]
  - Occult blood positive [None]
  - Haematocrit decreased [None]
